FAERS Safety Report 9106371 (Version 1)
Quarter: 2013Q1

REPORT INFORMATION
  Report Type: Other
  Country: PL (occurrence: PL)
  Receive Date: 20130221
  Receipt Date: 20130221
  Transmission Date: 20140127
  Serious: Yes (Life-Threatening)
  Sender: FDA-Public Use
  Company Number: PL-WATSON-2013-02700

PATIENT
  Age: 62 Year
  Sex: Male
  Weight: 84 kg

DRUGS (1)
  1. CARBOPLATIN [Suspect]
     Indication: PRODUCT USED FOR UNKNOWN INDICATION
     Dosage: 630 MG, UNKNOWN
     Route: 042
     Dates: start: 20121112

REACTIONS (5)
  - Hypotension [Unknown]
  - Nausea [Unknown]
  - Pallor [Unknown]
  - Pain [Unknown]
  - Malaise [Unknown]
